FAERS Safety Report 11135762 (Version 1)
Quarter: 2015Q2

REPORT INFORMATION
  Report Type: Spontaneous
  Country: TN (occurrence: TN)
  Receive Date: 20150526
  Receipt Date: 20150526
  Transmission Date: 20150821
  Serious: Yes (Death, Other)
  Sender: FDA-Public Use
  Company Number: TN-PFIZER INC-2015173207

PATIENT
  Age: 39 Year
  Sex: Male

DRUGS (8)
  1. FOSFOMYCIN [Suspect]
     Active Substance: FOSFOMYCIN
  2. IMIPENEM [Suspect]
     Active Substance: IMIPENEM
  3. AMIKACIN [Suspect]
     Active Substance: AMIKACIN
  4. AMPHOTERICINE B [Suspect]
     Active Substance: AMPHOTERICIN B
     Indication: EVIDENCE BASED TREATMENT
  5. FLUCONAZOLE. [Suspect]
     Active Substance: FLUCONAZOLE
  6. TAZOCILLINE [Suspect]
     Active Substance: PIPERACILLIN SODIUM\TAZOBACTAM SODIUM
     Indication: FEBRILE NEUTROPENIA
  7. VANCOMYCIN [Suspect]
     Active Substance: VANCOMYCIN
     Indication: FEBRILE NEUTROPENIA
  8. AMPHOTERICINE B [Suspect]
     Active Substance: AMPHOTERICIN B
     Indication: FUNGAL INFECTION

REACTIONS (4)
  - General physical health deterioration [Unknown]
  - Drug ineffective [Unknown]
  - Diarrhoea [Unknown]
  - Respiratory failure [Fatal]
